FAERS Safety Report 5753847-3 (Version None)
Quarter: 2008Q2

REPORT INFORMATION
  Report Type: 
  Country: None (occurrence: None)
  Receive Date: 20080530
  Receipt Date: 20070808
  Transmission Date: 20081010
  Serious: Yes (Hospitalization)
  Sender: FDA-Public Use
  Company Number: A0662970A

PATIENT
  Age: 77 Year
  Sex: Female
  Weight: 64 kg

DRUGS (1)
  1. FLOLAN [Suspect]
     Indication: PULMONARY HYPERTENSION
     Route: 042
     Dates: start: 20070702, end: 20070703

REACTIONS (4)
  - DYSPNOEA [None]
  - HYPOXIA [None]
  - PLEURAL EFFUSION [None]
  - PULMONARY OEDEMA [None]
